FAERS Safety Report 8464056-1 (Version None)
Quarter: 2012Q2

REPORT INFORMATION
  Report Type: 
  Country: None (occurrence: None)
  Receive Date: 20120323
  Receipt Date: 20111006
  Transmission Date: 20120825
  Serious: Yes (Hospitalization)
  Sender: FDA-Public Use
  Company Number: 163-21880-11101068

PATIENT
  Age: 82 Year
  Sex: Male

DRUGS (9)
  1. ALPRAZOLAM [Concomitant]
  2. PREVACID [Concomitant]
  3. PROCHLORPERAZINE MALEATE (PROCHLORPERAZINE MALEATE) [Concomitant]
  4. DEXAMETHASONE [Concomitant]
  5. REVLIMID [Suspect]
     Indication: MULTIPLE MYELOMA
     Dosage: 25 MG, 1 I N1 D, PO
     Route: 048
     Dates: start: 20110616
  6. ZOFRAN [Concomitant]
  7. METAMUCIL-2 [Concomitant]
  8. WARFARIN SODIUIM (WARFARIN SODIUM) [Concomitant]
  9. CALCIUM CARBONATE [Concomitant]

REACTIONS (1)
  - ANAEMIA [None]
